FAERS Safety Report 22884557 (Version 3)
Quarter: 2023Q4

REPORT INFORMATION
  Report Type: Spontaneous
  Country: CH (occurrence: CH)
  Receive Date: 20230830
  Receipt Date: 20231026
  Transmission Date: 20240110
  Serious: Yes (Hospitalization)
  Sender: FDA-Public Use
  Company Number: CH-ELI_LILLY_AND_COMPANY-CH202308017602

PATIENT
  Age: 46 Year
  Sex: Female
  Weight: 52 kg

DRUGS (3)
  1. BARICITINIB [Suspect]
     Active Substance: BARICITINIB
     Indication: Lichen planus
     Dosage: 4 MG, DAILY
     Route: 048
     Dates: start: 202210
  2. BARICITINIB [Suspect]
     Active Substance: BARICITINIB
     Dosage: 6 MG, DAILY
     Route: 048
     Dates: end: 20230317
  3. ESCITALOPRAM [Concomitant]
     Active Substance: ESCITALOPRAM OXALATE
     Indication: Product used for unknown indication
     Dosage: 15 MG, DAILY
     Route: 065

REACTIONS (2)
  - Fallopian tube cancer stage III [Not Recovered/Not Resolved]
  - Off label use [Unknown]

NARRATIVE: CASE EVENT DATE: 20230301
